FAERS Safety Report 8152844-0 (Version None)
Quarter: 2012Q1

REPORT INFORMATION
  Report Type: 
  Country: None (occurrence: None)
  Receive Date: 20120221
  Receipt Date: 20120209
  Transmission Date: 20120608
  Serious: Yes (Other)
  Sender: FDA-Public Use
  Company Number: US-JNJFOC-20120206139

PATIENT
  Sex: Female
  Weight: 50.8 kg

DRUGS (9)
  1. CLONAZEPAM [Concomitant]
     Indication: DEPRESSION
     Route: 048
     Dates: start: 20120101
  2. QUESTRAN [Concomitant]
     Indication: CROHN'S DISEASE
     Route: 065
  3. XANAX [Concomitant]
     Indication: DEPRESSION
     Dosage: AS NEEDED
     Route: 048
  4. PROZAC [Concomitant]
     Indication: DEPRESSION
     Route: 048
     Dates: start: 20070101
  5. ENTOCORT EC [Concomitant]
     Indication: CROHN'S DISEASE
     Route: 048
  6. IMODIUM [Concomitant]
     Indication: CROHN'S DISEASE
     Dosage: AS NEEDED
     Route: 048
  7. DEXILANT [Concomitant]
     Indication: GASTROOESOPHAGEAL REFLUX DISEASE
     Route: 048
     Dates: start: 20080101
  8. REMICADE [Suspect]
     Indication: CROHN'S DISEASE
     Route: 042
     Dates: start: 20120124
  9. CARAFATE [Concomitant]
     Indication: GASTROOESOPHAGEAL REFLUX DISEASE
     Dosage: AS NEEDED
     Route: 048

REACTIONS (10)
  - PAIN IN EXTREMITY [None]
  - ORAL HERPES [None]
  - DEPRESSION [None]
  - MUSCLE TWITCHING [None]
  - MALAISE [None]
  - ABDOMINAL PAIN UPPER [None]
  - EYE SWELLING [None]
  - DIARRHOEA [None]
  - MUSCLE SPASMS [None]
  - CONTUSION [None]
